FAERS Safety Report 17735173 (Version 1)
Quarter: 2020Q2

REPORT INFORMATION
  Report Type: Spontaneous
  Country: US (occurrence: US)
  Receive Date: 20200501
  Receipt Date: 20200501
  Transmission Date: 20200714
  Serious: No
  Sender: FDA-Public Use
  Company Number: US-RADIUS HEALTH INC.-2020US000708

PATIENT
  Age: 84 Year
  Sex: Female

DRUGS (1)
  1. TYMLOS [Suspect]
     Active Substance: ABALOPARATIDE
     Indication: OSTEOPOROSIS POSTMENOPAUSAL
     Dosage: 80 MCG, DAILY
     Route: 058
     Dates: start: 20200218, end: 202002

REACTIONS (9)
  - Defaecation urgency [Not Recovered/Not Resolved]
  - Dizziness [Recovering/Resolving]
  - Abdominal discomfort [Recovering/Resolving]
  - Dyspnoea [Unknown]
  - Vertigo [Unknown]
  - Headache [Recovering/Resolving]
  - Eructation [Not Recovered/Not Resolved]
  - Malaise [Unknown]
  - Vision blurred [Unknown]

NARRATIVE: CASE EVENT DATE: 20200220
